FAERS Safety Report 18520129 (Version 2)
Quarter: 2020Q4

REPORT INFORMATION
  Report Type: Spontaneous
  Country: PL (occurrence: PL)
  Receive Date: 20201118
  Receipt Date: 20201203
  Transmission Date: 20210114
  Serious: Yes (Other)
  Sender: FDA-Public Use
  Company Number: PL-BAXTER-2020BAX023185

PATIENT
  Age: 79 Year
  Sex: Male

DRUGS (2)
  1. INJECTIO GLUCOSI 10% BAXTER [Suspect]
     Active Substance: DEXTROSE MONOHYDRATE
     Indication: PRODUCT USED FOR UNKNOWN INDICATION
     Dosage: INFUSION
     Route: 065
  2. NATRIUM CHLORATUM 0,9% BAXTER [Suspect]
     Active Substance: SODIUM CHLORIDE
     Indication: PRODUCT USED FOR UNKNOWN INDICATION
     Dosage: INFUSIONS
     Route: 065

REACTIONS (3)
  - Depressed level of consciousness [Unknown]
  - Somnolence [Unknown]
  - Condition aggravated [Unknown]
